FAERS Safety Report 9812995 (Version 1)
Quarter: 2014Q1

REPORT INFORMATION
  Report Type: Spontaneous
  Country: US (occurrence: None)
  Receive Date: 20140109
  Receipt Date: 20140109
  Transmission Date: 20141002
  Serious: Yes (Other)
  Sender: FDA-Public Use
  Company Number: None

PATIENT
  Age: 52 Year
  Sex: Female
  Weight: 61.24 kg

DRUGS (9)
  1. FORTEO 600 MCG/2.4ML PEN ELI LILLY + COMPANY [Suspect]
     Indication: OSTEOPOROSIS
     Dosage: INJECTION INTO THE THIGH
     Dates: start: 20131216, end: 20131222
  2. VERAPAMIL [Concomitant]
  3. SPIRONOLACTONE [Concomitant]
  4. POTASSIUM [Concomitant]
  5. VITAMIN D3 WITH CALCIUM [Concomitant]
  6. BIOTIN [Concomitant]
  7. MULTI-VITAMINS [Concomitant]
  8. OCCASIONAL VITAMIN C [Concomitant]
  9. ZANTAC [Concomitant]

REACTIONS (11)
  - Dizziness [None]
  - Headache [None]
  - Vertigo [None]
  - Heart rate increased [None]
  - Chest discomfort [None]
  - Abdominal pain [None]
  - Dyspepsia [None]
  - Feeling hot [None]
  - Hyperhidrosis [None]
  - Musculoskeletal pain [None]
  - Palpitations [None]
